FAERS Safety Report 8383015-0 (Version None)
Quarter: 2012Q2

REPORT INFORMATION
  Report Type: 
  Country: None (occurrence: None)
  Receive Date: 20120524
  Receipt Date: 20120522
  Transmission Date: 20120825
  Serious: Yes (Death, Other)
  Sender: FDA-Public Use
  Company Number: PHEH2012US010658

PATIENT
  Sex: Female

DRUGS (9)
  1. XELODA [Concomitant]
     Dosage: 500 MG, UNK
  2. FISH OIL [Concomitant]
  3. CALCIUM WITH VITAMIN D [Concomitant]
  4. EFFEXOR [Concomitant]
     Dosage: 25 MG, UNK
  5. AFINITOR [Suspect]
     Dosage: 10 MG, DAILY
     Route: 048
  6. ZOMETA [Concomitant]
     Dosage: 4 MG/5 ML
  7. MULTIVITAMIN [Concomitant]
  8. SYNTHROID [Concomitant]
     Dosage: 25 UG, UNK
  9. GLUCOSAMINE W/CHONDROITIN [Concomitant]

REACTIONS (2)
  - BREAST CANCER [None]
  - DEATH [None]
